FAERS Safety Report 6190454-5 (Version None)
Quarter: 2009Q2

REPORT INFORMATION
  Report Type: 
  Country: None (occurrence: None)
  Receive Date: 20090514
  Receipt Date: 20090512
  Transmission Date: 20091009
  Serious: No
  Sender: FDA-Public Use
  Company Number: US-B.I. PHARMACEUTICALS,INC./RIDGEFIELD-2007-BP-17642BP

PATIENT
  Sex: Male

DRUGS (1)
  1. MIRAPEX [Suspect]
     Indication: PARKINSON'S DISEASE
     Dosage: 4.5MG
     Route: 048
     Dates: start: 20000101, end: 20070101

REACTIONS (3)
  - PATHOLOGICAL GAMBLING [None]
  - SOMNOLENCE [None]
  - SUDDEN ONSET OF SLEEP [None]
